FAERS Safety Report 9494929 (Version 2)
Quarter: 2013Q3

REPORT INFORMATION
  Report Type: Spontaneous
  Country: AU (occurrence: None)
  Receive Date: 20130828
  Receipt Date: 20130916
  Transmission Date: 20140515
  Serious: Yes (Other)
  Sender: FDA-Public Use
  Company Number: AUR-APL-2013-06959

PATIENT
  Age: 78 Year
  Sex: Male

DRUGS (5)
  1. ALENDRONIC ACID (ALENDRONIC ACID) [Suspect]
     Indication: PRODUCT USED FOR UNKNOWN INDICATION
     Dosage: (70 MG, 1 WK)
  2. DENOSUMAB (DENOSUMAB) (RANMARK)) [Suspect]
     Indication: METASTASES TO BONE
  3. CABAZITAXEL (CABAZITAXEL) [Concomitant]
  4. CHOLECALCIFEROL (COLECALCIFEROL) [Concomitant]
  5. CALTRATE (LEKOVIT CA) [Concomitant]

REACTIONS (4)
  - Hypocalcaemia [None]
  - Muscle twitching [None]
  - Electrocardiogram QT prolonged [None]
  - Diarrhoea [None]
